FAERS Safety Report 22350181 (Version 1)
Quarter: 2023Q2

REPORT INFORMATION
  Report Type: Spontaneous
  Country: FR (occurrence: FR)
  Receive Date: 20230522
  Receipt Date: 20230522
  Transmission Date: 20230722
  Serious: Yes (Hospitalization)
  Sender: FDA-Public Use
  Company Number: None

PATIENT
  Age: 60 Year
  Sex: Male
  Weight: 60 kg

DRUGS (1)
  1. NEXAVAR [Suspect]
     Active Substance: SORAFENIB
     Indication: Acute myeloid leukaemia
     Dosage: 100 MG, BID
     Route: 048
     Dates: start: 201905

REACTIONS (2)
  - Ischaemic stroke [Recovered/Resolved]
  - Off label use [None]

NARRATIVE: CASE EVENT DATE: 20230303
